FAERS Safety Report 23928779 (Version 2)
Quarter: 2025Q3

REPORT INFORMATION
  Report Type: Spontaneous
  Country: US (occurrence: US)
  Receive Date: 20240531
  Receipt Date: 20250703
  Transmission Date: 20251021
  Serious: No
  Sender: RADIUS PHARM
  Company Number: US-RADIUS HEALTH INC.-2024US001181

PATIENT
  Sex: Female

DRUGS (4)
  1. TYMLOS [Suspect]
     Active Substance: ABALOPARATIDE
     Indication: Osteoporosis postmenopausal
     Route: 058
     Dates: start: 202312
  2. TYMLOS [Suspect]
     Active Substance: ABALOPARATIDE
     Route: 058
  3. TYMLOS [Suspect]
     Active Substance: ABALOPARATIDE
     Route: 058
     Dates: start: 202312
  4. XANAX [Concomitant]
     Active Substance: ALPRAZOLAM
     Indication: Product used for unknown indication

REACTIONS (17)
  - Condition aggravated [Not Recovered/Not Resolved]
  - Nausea [Recovered/Resolved]
  - Bone pain [Recovering/Resolving]
  - Heart rate increased [Recovered/Resolved]
  - Back pain [Not Recovered/Not Resolved]
  - Arthralgia [Recovering/Resolving]
  - Palpitations [Recovered/Resolved]
  - Blood thyroid stimulating hormone increased [Unknown]
  - Mobility decreased [Not Recovered/Not Resolved]
  - Injection site pain [Unknown]
  - Pollakiuria [Unknown]
  - Therapeutic response unexpected [Recovered/Resolved]
  - Spinal fracture [Unknown]
  - Lacrimation increased [Unknown]
  - Depressed mood [Recovered/Resolved]
  - Intentional product misuse [Unknown]
  - Intentional dose omission [Unknown]

NARRATIVE: CASE EVENT DATE: 20231201
